FAERS Safety Report 24299101 (Version 1)
Quarter: 2024Q3

REPORT INFORMATION
  Report Type: Report from Study
  Country: ZA (occurrence: ZA)
  Receive Date: 20240909
  Receipt Date: 20240909
  Transmission Date: 20241017
  Serious: Yes (Hospitalization)
  Sender: ABBVIE
  Company Number: ZA-ABBOTT-2024A-1387212

PATIENT
  Age: 60 Year
  Sex: Male

DRUGS (16)
  1. FENOFIBRATE [Suspect]
     Active Substance: FENOFIBRATE
     Indication: Blood cholesterol
     Dosage: 200 MG TAKE ONE CAPSULE DAILY
     Route: 048
  2. CANDESARTAN CILEXETIL\HYDROCHLOROTHIAZIDE [Concomitant]
     Active Substance: CANDESARTAN CILEXETIL\HYDROCHLOROTHIAZIDE
     Indication: Hypertension
     Dosage: 16/12.5 MG TAKE ONE TABLET DAILY
     Route: 048
  3. SINUTAB SINUS/PAIN [Concomitant]
     Indication: Product used for unknown indication
     Dosage: AS DIRECTED
     Route: 048
  4. METFORMIN HYDROCHLORIDE [Concomitant]
     Active Substance: METFORMIN HYDROCHLORIDE
     Indication: Diabetes mellitus
     Dosage: 1000 MG TAKE ONE TABLET BY TWICE A DAY
     Route: 048
  5. Somnil [Concomitant]
     Indication: Product used for unknown indication
     Dosage: 25 MG TAKE ONE TABLET IN THE EVENING
     Route: 048
  6. ACETAMINOPHEN\ORPHENADRINE CITRATE [Concomitant]
     Active Substance: ACETAMINOPHEN\ORPHENADRINE CITRATE
     Indication: Product used for unknown indication
     Dosage: AS DIRECTED
     Route: 048
  7. BUDEP XR [Concomitant]
     Indication: Depression
     Dosage: 300 MG TAKE ONE TABLET IN THE MORNING
     Route: 048
  8. DULOXETINE HYDROCHLORIDE [Concomitant]
     Active Substance: DULOXETINE HYDROCHLORIDE
     Indication: Depression
     Dosage: 30 MG TAKE ONE CAPSULE DAILY
     Route: 048
  9. OXAZEPAM [Concomitant]
     Active Substance: OXAZEPAM
     Indication: Anxiety
     Dosage: 15 MG TAKE ONE TABLET DAILY
     Route: 048
  10. ASPIRIN [Concomitant]
     Active Substance: ASPIRIN
     Indication: Blood disorder prophylaxis
     Dosage: 100 MG TAKE ONE TABLET DAILY
     Route: 048
  11. TOUJEO [Concomitant]
     Active Substance: INSULIN GLARGINE
     Indication: Diabetes mellitus
     Dosage: 300 IU 36UNITS DAILY AS DIRECTED
     Route: 058
  12. CARVEDILOL [Concomitant]
     Active Substance: CARVEDILOL
     Indication: Hypertension
     Dosage: 6.25 MG TAKE ONE TABLET BY TWICE A DAY
     Route: 048
  13. QUETIAPINE [Concomitant]
     Active Substance: QUETIAPINE
     Indication: Mental disorder
     Dosage: 25 MG TAKE ONE TABLET IN THE EVENING
     Route: 048
  14. DORMONOCT [Concomitant]
     Active Substance: LOPRAZOLAM
     Indication: Sleep disorder
     Dosage: 2 MG TAKE ONE TABLET IN THE EVENING
     Route: 048
  15. GLICLAZIDE [Concomitant]
     Active Substance: GLICLAZIDE
     Indication: Diabetes mellitus
     Dosage: 60 MG TAKE ONE TABLET DAILY
     Route: 048
  16. Lipogen [Concomitant]
     Indication: Blood cholesterol
     Dosage: 40 MG TAKE ONE TABLET IN THE EVENING
     Route: 048

REACTIONS (2)
  - Surgery [Unknown]
  - Malaise [Unknown]
